FAERS Safety Report 13256047 (Version 1)
Quarter: 2017Q1

REPORT INFORMATION
  Report Type: Spontaneous
  Country: FR (occurrence: FR)
  Receive Date: 20170221
  Receipt Date: 20170221
  Transmission Date: 20170428
  Serious: Yes (Other)
  Sender: FDA-Public Use
  Company Number: FR-SA-2017SA027195

PATIENT
  Age: 84 Year
  Sex: Female

DRUGS (35)
  1. LOVENOX [Concomitant]
     Active Substance: ENOXAPARIN SODIUM
     Indication: PROPHYLAXIS
     Dates: start: 20161012, end: 20161114
  2. SPIRONOLACTONE. [Concomitant]
     Active Substance: SPIRONOLACTONE
     Dates: start: 20161012, end: 20161114
  3. BISOPROLOL [Concomitant]
     Active Substance: BISOPROLOL
     Dates: start: 20161012, end: 20161114
  4. ZAMUDOL [Concomitant]
     Active Substance: TRAMADOL HYDROCHLORIDE
     Dates: start: 20161012, end: 20161018
  5. DUROGESIC [Concomitant]
     Active Substance: FENTANYL
     Dates: start: 20161026, end: 20161114
  6. ESOMEPRAZOLE [Concomitant]
     Active Substance: ESOMEPRAZOLE
     Dates: start: 20161027, end: 20161114
  7. TOPALGIC [Concomitant]
     Active Substance: TRAMADOL
     Dates: start: 201610, end: 20161114
  8. MORPHINE [Concomitant]
     Active Substance: MORPHINE
     Dates: start: 20161113, end: 20161113
  9. TEICOPLANIN [Concomitant]
     Active Substance: TEICOPLANIN
     Route: 042
     Dates: start: 20161025, end: 20161113
  10. AROMASIN [Concomitant]
     Active Substance: EXEMESTANE
     Dates: start: 20161018, end: 20161114
  11. ACTISKENAN [Concomitant]
     Active Substance: MORPHINE SULFATE
     Dates: start: 20161021, end: 20161021
  12. TEICOPLANIN [Concomitant]
     Active Substance: TEICOPLANIN
     Route: 042
     Dates: start: 20161012, end: 20161015
  13. SIROCTID [Concomitant]
     Active Substance: OCTREOTIDE ACETATE
     Dates: start: 20161108, end: 20161108
  14. TEICOPLANIN [Concomitant]
     Active Substance: TEICOPLANIN
     Route: 042
     Dates: start: 20161011, end: 20161011
  15. TEICOPLANIN [Concomitant]
     Active Substance: TEICOPLANIN
     Route: 042
     Dates: start: 20161012, end: 20161012
  16. RAMIPRIL. [Concomitant]
     Active Substance: RAMIPRIL
     Dates: start: 201610, end: 20161114
  17. PARACETAMOL [Concomitant]
     Active Substance: ACETAMINOPHEN
     Dates: start: 20161017, end: 20161114
  18. DUPHALAC [Concomitant]
     Active Substance: LACTULOSE
     Dates: start: 20161012, end: 20161114
  19. FUROSEMIDE. [Concomitant]
     Active Substance: FUROSEMIDE
     Dates: start: 20161112, end: 20161114
  20. LETROZOLE. [Concomitant]
     Active Substance: LETROZOLE
     Dates: start: 20161013, end: 20161114
  21. INSULIN LISPRO [Concomitant]
     Active Substance: INSULIN LISPRO
     Dates: end: 20161014
  22. INSULIN GLARGINE [Concomitant]
     Active Substance: INSULIN GLARGINE
     Dates: end: 20161114
  23. PANTOPRAZOLE [Concomitant]
     Active Substance: PANTOPRAZOLE SODIUM
     Dates: start: 20161108, end: 20161109
  24. VIALEBEX [Concomitant]
     Active Substance: ALBUMIN HUMAN
     Dates: start: 20161107, end: 20161107
  25. VIALEBEX [Concomitant]
     Active Substance: ALBUMIN HUMAN
     Dates: start: 20161109, end: 20161109
  26. TEICOPLANIN [Concomitant]
     Active Substance: TEICOPLANIN
     Route: 042
     Dates: start: 20161021, end: 20161023
  27. RIMACTAN [Suspect]
     Active Substance: RIFAMPIN
     Indication: PROPHYLAXIS
     Route: 065
     Dates: start: 20161012
  28. PANTOPRAZOLE [Concomitant]
     Active Substance: PANTOPRAZOLE SODIUM
     Dates: start: 20161012, end: 20161114
  29. PANTOPRAZOLE [Concomitant]
     Active Substance: PANTOPRAZOLE SODIUM
     Dates: start: 20161111, end: 20161114
  30. BIONOLYTE [Concomitant]
     Active Substance: UNSPECIFIED INGREDIENT
     Dates: start: 201610, end: 20161114
  31. DOXYCYCLINE. [Concomitant]
     Active Substance: DOXYCYCLINE
     Dates: start: 20161027, end: 20161112
  32. TEICOPLANIN [Concomitant]
     Active Substance: TEICOPLANIN
     Route: 042
     Dates: start: 20161016, end: 20161017
  33. RIMACTAN [Suspect]
     Active Substance: RIFAMPIN
     Indication: PROPHYLAXIS
     Route: 065
     Dates: end: 20161114
  34. GRANUDOXY [Concomitant]
     Dates: start: 20161018, end: 20161027
  35. SCOPODERM [Concomitant]
     Active Substance: SCOPOLAMINE
     Dates: start: 20161114, end: 20161114

REACTIONS (1)
  - Hepatic failure [Not Recovered/Not Resolved]

NARRATIVE: CASE EVENT DATE: 20161020
